FAERS Safety Report 5779310-1 (Version None)
Quarter: 2008Q2

REPORT INFORMATION
  Report Type: 
  Country: None (occurrence: None)
  Receive Date: 20080619
  Receipt Date: 20071226
  Transmission Date: 20081010
  Serious: No
  Sender: FDA-Public Use
  Company Number: US-ASTRAZENECA-2007UW27891

PATIENT
  Age: 75 Year
  Sex: Male
  Weight: 77.1 kg

DRUGS (9)
  1. ATACAND [Suspect]
     Indication: HYPERTENSION
     Route: 048
     Dates: start: 20071206
  2. ATACAND [Suspect]
     Route: 048
  3. PREVACID [Concomitant]
  4. TURMERIC [Concomitant]
  5. FISH OIL [Concomitant]
  6. MULTI-VITAMIN [Concomitant]
  7. ENTERIC COATED ACETYLSALICYLIC ACID [Concomitant]
  8. PRINIVIL [Concomitant]
     Dates: end: 20071205
  9. ATIVAN [Concomitant]

REACTIONS (2)
  - BURNING SENSATION [None]
  - DRY MOUTH [None]
